FAERS Safety Report 18259623 (Version 2)
Quarter: 2020Q4

REPORT INFORMATION
  Report Type: Spontaneous
  Country: JP (occurrence: JP)
  Receive Date: 20200912
  Receipt Date: 20201022
  Transmission Date: 20210113
  Serious: Yes (Hospitalization, Other)
  Sender: FDA-Public Use
  Company Number: JP-SEATTLE GENETICS-2020SGN03222

PATIENT
  Age: 85 Year
  Sex: Male
  Weight: 66.6 kg

DRUGS (7)
  1. DACARBAZINE. [Suspect]
     Active Substance: DACARBAZINE
     Indication: HODGKIN^S DISEASE MIXED CELLULARITY STAGE III
     Dosage: 430 MILLIGRAM, QD
     Route: 041
     Dates: start: 20200415, end: 20200415
  2. SILODOSIN. [Concomitant]
     Active Substance: SILODOSIN
     Indication: DYSURIA
     Dosage: 4 MILLIGRAM, BID
     Route: 048
     Dates: start: 20200615
  3. ADCETRIS [Suspect]
     Active Substance: BRENTUXIMAB VEDOTIN
     Indication: HODGKIN^S DISEASE MIXED CELLULARITY STAGE III
     Dosage: 88 MILLIGRAM, QD
     Route: 041
     Dates: start: 20200415, end: 20200415
  4. EXAL (VINBLASTINE SULFATE) [Suspect]
     Active Substance: VINBLASTINE SULFATE
     Indication: HODGKIN^S DISEASE MIXED CELLULARITY STAGE III
     Dosage: 6.9 MILLIGRAM, QD
     Route: 041
     Dates: start: 20200415, end: 20200415
  5. DOXORUBICIN HYDROCHLORIDE. [Suspect]
     Active Substance: DOXORUBICIN HYDROCHLORIDE
     Indication: HODGKIN^S DISEASE MIXED CELLULARITY STAGE III
     Dosage: 29 MILLIGRAM, QD
     Route: 041
     Dates: start: 20200415, end: 20200415
  6. ADCETRIS [Suspect]
     Active Substance: BRENTUXIMAB VEDOTIN
     Dosage: 124 MILLIGRAM, QD
     Route: 041
     Dates: start: 20200602, end: 20200602
  7. ADCETRIS [Suspect]
     Active Substance: BRENTUXIMAB VEDOTIN
     Dosage: 120 MILLIGRAM, QD
     Route: 041
     Dates: start: 20200623, end: 20200623

REACTIONS (6)
  - Gastric cancer [Recovering/Resolving]
  - Colon cancer [Recovering/Resolving]
  - Atrial fibrillation [Recovering/Resolving]
  - Interstitial lung disease [Recovering/Resolving]
  - Febrile neutropenia [Recovering/Resolving]
  - Pneumonia aspiration [Recovering/Resolving]

NARRATIVE: CASE EVENT DATE: 20200414
